FAERS Safety Report 5096383-2 (Version None)
Quarter: 2006Q3

REPORT INFORMATION
  Report Type: 
  Country: None (occurrence: None)
  Receive Date: 20060830
  Receipt Date: 20060814
  Transmission Date: 20061208
  Serious: Yes (Hospitalization, Other)
  Sender: FDA-Public Use
  Company Number: 2006RR-03433

PATIENT
  Age: 21 Year
  Sex: Female

DRUGS (1)
  1. IBUPROFEN [Suspect]
     Dosage: 8 G,

REACTIONS (6)
  - AMNIOTIC FLUID VOLUME DECREASED [None]
  - COAGULATION TIME PROLONGED [None]
  - DRUG EXPOSURE DURING PREGNANCY [None]
  - INDUCED LABOUR [None]
  - OVERDOSE [None]
  - PLATELET FUNCTION TEST ABNORMAL [None]
